FAERS Safety Report 9204369 (Version 2)
Quarter: 2013Q2

REPORT INFORMATION
  Report Type: Spontaneous
  Country: US (occurrence: None)
  Receive Date: 20130329
  Receipt Date: 20130425
  Transmission Date: 20140414
  Serious: Yes (Hospitalization)
  Sender: FDA-Public Use
  Company Number: UTC-030702

PATIENT
  Age: 45 Year
  Sex: Male
  Weight: 102.2 kg

DRUGS (2)
  1. TYVASO [Suspect]
     Indication: COR PULMONALE CHRONIC
     Dosage: 18 TO 54 MICROGRAMS (4 IN 1 D), INHALATION
     Route: 055
     Dates: start: 20130307
  2. REVATIO SILDENAFIL CITRATE [Concomitant]

REACTIONS (4)
  - Chest pain [None]
  - Abdominal pain [None]
  - Pancreatitis [None]
  - Hypertension [None]
